FAERS Safety Report 9799515 (Version 2)
Quarter: 2014Q1

REPORT INFORMATION
  Report Type: Report from Study
  Country: CA (occurrence: CA)
  Receive Date: 20140106
  Receipt Date: 20140106
  Transmission Date: 20141002
  Serious: Yes (Other)
  Sender: FDA-Public Use
  Company Number: PHHY2013CA046961

PATIENT
  Age: 32 Year
  Sex: Female
  Weight: 72.56 kg

DRUGS (5)
  1. EXTAVIA [Suspect]
     Indication: MULTIPLE SCLEROSIS
     Dosage: 8 MIU, QOD
     Route: 058
     Dates: start: 20130426
  2. EXTAVIA [Suspect]
     Dosage: UNK UKN, UNK
     Route: 058
     Dates: start: 201307, end: 20130905
  3. ELAVIL [Concomitant]
     Dosage: 10 MG, QD
     Route: 048
  4. LYRICA [Concomitant]
     Dosage: 50 MG, BID
     Route: 048
  5. NSAID^S [Concomitant]
     Dosage: UNK UKN, UNK

REACTIONS (8)
  - Renal colic [Recovered/Resolved]
  - Abdominal pain [Recovered/Resolved]
  - Hepatic enzyme increased [Recovered/Resolved]
  - Alanine aminotransferase abnormal [Recovered/Resolved]
  - Aspartate aminotransferase abnormal [Recovered/Resolved]
  - Blood alkaline phosphatase abnormal [Recovered/Resolved]
  - Infection [Unknown]
  - Injection site erythema [Unknown]
